FAERS Safety Report 22001184 (Version 1)
Quarter: 2023Q1

REPORT INFORMATION
  Report Type: Report from Study
  Country: CA (occurrence: None)
  Receive Date: 20230216
  Receipt Date: 20230216
  Transmission Date: 20230418
  Serious: Yes (Other)
  Sender: FDA-Public Use
  Company Number: 2022A147990

PATIENT
  Sex: Female

DRUGS (4)
  1. FASENRA [Suspect]
     Active Substance: BENRALIZUMAB
     Indication: Severe asthma with fungal sensitisation
     Dosage: 30.0MG UNKNOWN
     Route: 058
     Dates: start: 20211027, end: 20220421
  2. SYMBICORT [Suspect]
     Active Substance: BUDESONIDE\FORMOTEROL FUMARATE DIHYDRATE
     Route: 055
  3. VENTOLIN [Concomitant]
     Active Substance: ALBUTEROL SULFATE
     Dosage: 2 PUFFS
  4. SYMBICORT [Concomitant]
     Active Substance: BUDESONIDE\FORMOTEROL FUMARATE DIHYDRATE
     Dosage: 2 PUFFS

REACTIONS (17)
  - Lower respiratory tract infection viral [Unknown]
  - Asthma [Unknown]
  - Middle insomnia [Unknown]
  - Sinusitis [Unknown]
  - Cough [Unknown]
  - Productive cough [Unknown]
  - Wheezing [Unknown]
  - Drug ineffective [Unknown]
  - COVID-19 [Unknown]
  - Swelling face [Unknown]
  - Periorbital swelling [Unknown]
  - Foreign body sensation in eyes [Unknown]
  - Lung disorder [Unknown]
  - Sinus disorder [Unknown]
  - Nasal congestion [Unknown]
  - Inappropriate schedule of product administration [Unknown]
  - Seasonal allergy [Unknown]
